FAERS Safety Report 9830883 (Version 1)
Quarter: 2014Q1

REPORT INFORMATION
  Report Type: Spontaneous
  Country: US (occurrence: US)
  Receive Date: 20140120
  Receipt Date: 20140120
  Transmission Date: 20141002
  Serious: No
  Sender: FDA-Public Use
  Company Number: US-009507513-1401USA005334

PATIENT
  Age: 66 Year
  Sex: Male

DRUGS (16)
  1. K-DUR [Suspect]
     Indication: PROPHYLAXIS
     Dosage: 20 MEQ, QD
     Route: 048
  2. DILTIAZEM HYDROCHLORIDE [Concomitant]
     Dosage: 240 MG, QD
     Route: 048
     Dates: start: 2013
  3. DILTIAZEM HYDROCHLORIDE [Concomitant]
     Dosage: 120 MG, QD
     Route: 048
     Dates: start: 2013
  4. CHLOROTHIAZIDE [Concomitant]
     Dosage: 25 MG, QAM
     Route: 048
     Dates: start: 201310
  5. VALSARTAN [Concomitant]
     Dosage: 160 MG, HS
     Route: 048
     Dates: start: 201307
  6. VALSARTAN [Concomitant]
     Dosage: 80 MG, HS
     Route: 048
     Dates: start: 201307
  7. VALSARTAN [Concomitant]
     Dosage: 80 MG, BID
     Route: 048
     Dates: start: 201307
  8. ASPIRIN [Concomitant]
     Dosage: 81 MG, QD
     Route: 048
  9. PRAVASTATIN SODIUM [Concomitant]
     Dosage: 40 MG, HS
     Route: 048
  10. IBUPROFEN [Concomitant]
     Dosage: 800 MG, PRN, REPORTED USING 1 TABLET EVERY 1 TO 2 WEEKS
     Route: 048
  11. MORPHINE SULFATE [Concomitant]
     Dosage: 15 MG, HS
     Route: 048
  12. OXYCODONE [Concomitant]
     Dosage: 10 MG, PRN
     Route: 048
  13. OMEPRAZOLE [Concomitant]
     Dosage: 20 MG, QAM
     Route: 048
  14. CYANOCOBALAMIN [Concomitant]
     Dosage: 1000 MICROGRAM, QD
     Route: 048
  15. FOLIC ACID [Concomitant]
     Dosage: 1 MG, QD
     Route: 048
  16. THIAMINE [Concomitant]
     Dosage: 100 MG, QD
     Route: 048

REACTIONS (2)
  - Drug ineffective [Unknown]
  - Hypokalaemia [Unknown]
